FAERS Safety Report 12469813 (Version 1)
Quarter: 2016Q2

REPORT INFORMATION
  Report Type: Report from Study
  Country: CA (occurrence: CA)
  Receive Date: 20160615
  Receipt Date: 20160615
  Transmission Date: 20160815
  Serious: Yes (Other)
  Sender: FDA-Public Use
  Company Number: CA-GILEAD-2016-0219177

PATIENT
  Age: 60 Year
  Sex: Male

DRUGS (2)
  1. IBAVYR [Suspect]
     Active Substance: RIBAVIRIN
     Indication: HEPATITIS C
     Dosage: UNK
     Route: 065
     Dates: start: 20150122, end: 20150712
  2. SOFOSBUVIR [Suspect]
     Active Substance: SOFOSBUVIR
     Indication: HEPATITIS C
     Dosage: 400 MG, QD
     Route: 048
     Dates: start: 20150122, end: 20150712

REACTIONS (4)
  - Hepatitis C [Unknown]
  - Drug ineffective [Unknown]
  - Hepatitis C RNA positive [Recovered/Resolved]
  - Liver transplant [Recovered/Resolved]

NARRATIVE: CASE EVENT DATE: 20151020
